FAERS Safety Report 4459752-7 (Version None)
Quarter: 2004Q3

REPORT INFORMATION
  Report Type: 
  Country: None (occurrence: None)
  Receive Date: 20040928
  Receipt Date: 20031111
  Transmission Date: 20050211
  Serious: No
  Sender: FDA-Public Use
  Company Number: US-BRISTOL-MYERS SQUIBB COMPANY-12432654

PATIENT
  Age: 83 Year
  Sex: Female
  Weight: 43 kg

DRUGS (3)
  1. KENALOG-40 [Suspect]
     Indication: MONARTHRITIS
     Dates: start: 20031105, end: 20031105
  2. FOSAMAX [Concomitant]
  3. LIPITOR [Concomitant]

REACTIONS (2)
  - FLUSHING [None]
  - HEART RATE INCREASED [None]
